FAERS Safety Report 20237664 (Version 1)
Quarter: 2021Q4

REPORT INFORMATION
  Report Type: Spontaneous
  Country: US (occurrence: US)
  Receive Date: 20211228
  Receipt Date: 20211228
  Transmission Date: 20220303
  Serious: No
  Sender: FDA-Public Use
  Company Number: US-MAYNE PHARMA-2021MYN000497

PATIENT

DRUGS (1)
  1. CYCLOSPORINE [Suspect]
     Active Substance: CYCLOSPORINE
     Indication: Transplant
     Dosage: 25 MG; 4 CAPSULES AT MORNING AND 4 CAPSULES AT EVENING
     Route: 048
     Dates: start: 20210705

REACTIONS (1)
  - Abdominal discomfort [Not Recovered/Not Resolved]
